FAERS Safety Report 7681206-5 (Version None)
Quarter: 2011Q3

REPORT INFORMATION
  Report Type: 
  Country: None (occurrence: None)
  Receive Date: 20110812
  Receipt Date: 20110801
  Transmission Date: 20111222
  Serious: Yes (Other)
  Sender: FDA-Public Use
  Company Number: US-ELI_LILLY_AND_COMPANY-US201102005461

PATIENT
  Sex: Female
  Weight: 14.9 kg

DRUGS (1)
  1. HUMATROPE [Suspect]
     Dosage: 0.4 MG, DAILY (1/D)
     Dates: start: 20080328

REACTIONS (7)
  - GLIOSIS [None]
  - PINEAL GLAND CYST [None]
  - MASTOID DISORDER [None]
  - SINUS DISORDER [None]
  - NEOPLASM MALIGNANT [None]
  - NERVOUS SYSTEM DISORDER [None]
  - ENCEPHALOMALACIA [None]
